FAERS Safety Report 8850759 (Version 1)
Quarter: 2012Q4

REPORT INFORMATION
  Report Type: 
  Country: ES (occurrence: ES)
  Receive Date: 20121019
  Receipt Date: 20121019
  Transmission Date: 20130627
  Serious: Yes (Hospitalization, Other)
  Sender: FDA-Public Use
  Company Number: ES-ELI_LILLY_AND_COMPANY-ES201210003357

PATIENT
  Age: 88 Year
  Sex: Female
  Weight: 46 kg

DRUGS (8)
  1. FORSTEO [Suspect]
     Indication: OSTEOPOROSIS
     Dosage: 20 ug, qd
     Route: 058
     Dates: start: 20110311
  2. KEPRA [Concomitant]
     Indication: EPILEPSY
     Dosage: UNK, bid
     Route: 048
  3. SEROQUEL [Concomitant]
     Indication: EPILEPSY
     Dosage: 500 mg, qd
     Route: 048
  4. OMEPRAZOLE [Concomitant]
     Indication: GASTRIC DISORDER
     Dosage: UNK, bid
     Route: 048
  5. PARACETAMOL [Concomitant]
     Indication: PAIN
     Dosage: UNK, every 8 hrs
     Route: 048
  6. ATENOLOL [Concomitant]
     Indication: HYPERTENSION
     Dosage: UNK, qd
     Route: 048
  7. ISCOVER [Concomitant]
     Indication: PERIPHERAL VASCULAR DISORDER
     Dosage: UNK, qd
     Route: 048
  8. IRON [Concomitant]
     Indication: ANAEMIA
     Dosage: UNK, qd
     Route: 048

REACTIONS (3)
  - Loss of consciousness [Recovered/Resolved]
  - Dizziness [Not Recovered/Not Resolved]
  - Fall [Recovered/Resolved]
